FAERS Safety Report 19969034 (Version 1)
Quarter: 2021Q4

REPORT INFORMATION
  Report Type: Spontaneous
  Country: FR (occurrence: FR)
  Receive Date: 20211019
  Receipt Date: 20211019
  Transmission Date: 20220303
  Serious: Yes (Hospitalization)
  Sender: FDA-Public Use
  Company Number: None

PATIENT
  Age: 64 Year
  Sex: Male

DRUGS (3)
  1. PACLITAXEL [Interacting]
     Active Substance: PACLITAXEL
     Indication: Lung neoplasm malignant
     Dosage: 60 MG/M2 ON DAY 1, DAY 8 AND DAY 15
     Route: 042
     Dates: start: 20210211
  2. GEMFIBROZIL [Interacting]
     Active Substance: GEMFIBROZIL
     Indication: Hypercholesterolaemia
     Dosage: UNK
     Route: 048
     Dates: end: 20210224
  3. CARBOPLATIN [Interacting]
     Active Substance: CARBOPLATIN
     Dosage: UNK
     Route: 042
     Dates: start: 20210211

REACTIONS (2)
  - Drug interaction [Recovered/Resolved]
  - Febrile neutropenia [Recovered/Resolved]

NARRATIVE: CASE EVENT DATE: 20210211
